FAERS Safety Report 5356761-0 (Version None)
Quarter: 2007Q2

REPORT INFORMATION
  Report Type: 
  Country: None (occurrence: None)
  Receive Date: 20070530
  Receipt Date: 20061013
  Transmission Date: 20071010
  Serious: Yes (Other)
  Sender: FDA-Public Use
  Company Number: US200608002804

PATIENT
  Sex: Male
  Weight: 102 kg

DRUGS (6)
  1. ZYPREXA [Suspect]
     Dosage: 2.5 MG
     Dates: start: 19980101, end: 20040101
  2. ABILIFY [Concomitant]
  3. SEROQUEL [Concomitant]
  4. RISPERDAL [Concomitant]
  5. DEPAKOTE [Concomitant]
  6. PROZAC [Concomitant]

REACTIONS (3)
  - DIABETES MELLITUS [None]
  - OBESITY [None]
  - PANCREATITIS [None]
